FAERS Safety Report 13449292 (Version 2)
Quarter: 2017Q2

REPORT INFORMATION
  Report Type: Spontaneous
  Country: FR (occurrence: FR)
  Receive Date: 20170417
  Receipt Date: 20170426
  Transmission Date: 20170830
  Serious: Yes (Other)
  Sender: FDA-Public Use
  Company Number: FR-PFIZER INC-2017157560

PATIENT
  Age: 78 Year
  Sex: Female

DRUGS (13)
  1. SPECIAFOLDINE [Suspect]
     Active Substance: FOLIC ACID
     Indication: HYPOVITAMINOSIS
     Dosage: 1 DF, 1X/DAY
     Route: 048
     Dates: start: 20170226, end: 20170304
  2. LERCANIDIPINE HYDROCHLORIDE [Suspect]
     Active Substance: LERCANIDIPINE HYDROCHLORIDE
     Indication: HYPERTENSION
     Dosage: 10 MG, 1X/DAY
     Route: 048
     Dates: start: 20170224, end: 20170322
  3. NICOBION [Suspect]
     Active Substance: NIACINAMIDE
     Indication: VITAMIN B COMPLEX DEFICIENCY
     Dosage: 2 MG, 1X/DAY
     Route: 048
     Dates: start: 20170225, end: 20170303
  4. PHOSPHONEUROS [Suspect]
     Active Substance: CALCIUM PHOSPHATE, DIBASIC, ANHYDROUS\MAGNESIUM GLYCEROPHOSPHATE\PHOSPHORIC ACID\SODIUM PHOSPHATE, DIBASIC
     Indication: HYPOPHOSPHATAEMIA
     Dosage: 100 GTT, 1X/DAY
     Route: 048
     Dates: start: 20170227, end: 20170305
  5. VITAMIN B1 /00056102/ [Suspect]
     Active Substance: THIAMINE HYDROCHLORIDE
     Indication: HYPOVITAMINOSIS
     Dosage: 1 G, QD
     Route: 042
     Dates: start: 20170225, end: 20170303
  6. FRAGMINE [Suspect]
     Active Substance: DALTEPARIN SODIUM
     Indication: THROMBOSIS PROPHYLAXIS
     Dosage: 1 DF, 1X/DAY
     Route: 058
     Dates: start: 20170224, end: 20170301
  7. DIFFU K [Suspect]
     Active Substance: POTASSIUM CHLORIDE
     Indication: HYPOKALAEMIA
     Dosage: 3 DF, 1X/DAY
     Route: 048
     Dates: start: 20170225, end: 20170301
  8. VITAMIN B6 [Suspect]
     Active Substance: PYRIDOXINE HYDROCHLORIDE
     Indication: HYPOVITAMINOSIS
     Dosage: 500 MG, QD
     Route: 042
     Dates: start: 20170225, end: 20170303
  9. VITAMIN B12 [Suspect]
     Active Substance: CYANOCOBALAMIN
     Indication: HYPOVITAMINOSIS
     Dosage: 1 DF, 1X/DAY
     Route: 048
     Dates: start: 20170226, end: 20170304
  10. ATORVASTATIN CALCIUM. [Suspect]
     Active Substance: ATORVASTATIN CALCIUM
     Indication: HYPERCHOLESTEROLAEMIA
     Dosage: 40 MG, 1X/DAY
     Route: 048
     Dates: start: 20170224, end: 20170321
  11. PYRIDOXINE HYDROCHLORIDE/THIAMINE HYDROCHLORIDE [Suspect]
     Active Substance: PYRIDOXINE HYDROCHLORIDE\THIAMINE HYDROCHLORIDE
     Indication: HYPOVITAMINOSIS
     Dosage: 1 DF, 1X/DAY [500 MG]/[1 G]
     Route: 042
     Dates: start: 20170225, end: 20170303
  12. PANTOPRAZOLE [Suspect]
     Active Substance: PANTOPRAZOLE
     Indication: PROPHYLAXIS AGAINST GASTROINTESTINAL ULCER
     Dosage: 20 MG, 1X/DAY
     Route: 048
     Dates: start: 20170221
  13. KARDEGIC [Suspect]
     Active Substance: ASPIRIN LYSINE
     Indication: CEREBRAL INFARCTION
     Dosage: 160 MG, QD
     Route: 048
     Dates: start: 20170224, end: 20170301

REACTIONS (2)
  - Pruritus [Recovered/Resolved]
  - Erythema [Recovered/Resolved]

NARRATIVE: CASE EVENT DATE: 20170227
